FAERS Safety Report 16953974 (Version 1)
Quarter: 2019Q4

REPORT INFORMATION
  Report Type: Spontaneous
  Country: US (occurrence: US)
  Receive Date: 20191023
  Receipt Date: 20191023
  Transmission Date: 20200122
  Serious: No
  Sender: FDA-Public Use
  Company Number: US-ABBVIE-19K-163-2944567-00

PATIENT
  Age: 29 Year
  Sex: Female

DRUGS (1)
  1. ORILISSA [Suspect]
     Active Substance: ELAGOLIX SODIUM
     Indication: OFF LABEL USE
     Route: 048
     Dates: start: 20190804, end: 201909

REACTIONS (3)
  - Off label use [Recovered/Resolved]
  - Vaginal haemorrhage [Recovered/Resolved]
  - Menstrual disorder [Unknown]

NARRATIVE: CASE EVENT DATE: 201908
